FAERS Safety Report 7641428-6 (Version None)
Quarter: 2011Q3

REPORT INFORMATION
  Report Type: 
  Country: None (occurrence: None)
  Receive Date: 20110722
  Receipt Date: 20110708
  Transmission Date: 20111222
  Serious: Yes (Hospitalization, Other)
  Sender: FDA-Public Use
  Company Number: 2011MA008453

PATIENT
  Age: 39 Year
  Sex: Female

DRUGS (1)
  1. VERAPAMIL HYDROCHLORIDE [Suspect]
     Indication: OVERDOSE
     Dosage: 4.08 G; 1X; PO
     Route: 048

REACTIONS (11)
  - LETHARGY [None]
  - ATRIOVENTRICULAR BLOCK [None]
  - SOMNOLENCE [None]
  - BLOOD CALCIUM DECREASED [None]
  - HYPOTENSION [None]
  - CHEST DISCOMFORT [None]
  - BLOOD BICARBONATE DECREASED [None]
  - OVERDOSE [None]
  - INCORRECT DOSE ADMINISTERED [None]
  - DYSPNOEA [None]
  - HYPERHIDROSIS [None]
